FAERS Safety Report 9020370 (Version 1)
Quarter: 2013Q1

REPORT INFORMATION
  Report Type: Spontaneous
  Country: US (occurrence: US)
  Receive Date: 20130119
  Receipt Date: 20130119
  Transmission Date: 20140127
  Serious: No
  Sender: FDA-Public Use
  Company Number: US-ALLERGAN-1208210US

PATIENT
  Sex: Female

DRUGS (5)
  1. BOTOX? [Suspect]
     Indication: HEADACHE
     Dosage: 185 UNITS, SINGLE
     Route: 030
     Dates: start: 20120416, end: 20120416
  2. BOTOX? [Suspect]
     Dosage: 185 UNITS, SINGLE
     Route: 030
     Dates: start: 20111220, end: 20111220
  3. BOTOX? [Suspect]
     Dosage: 185 UNITS, SINGLE
     Route: 030
     Dates: start: 20110919, end: 20110919
  4. BOTOX? [Suspect]
     Dosage: 155 UNITS, SINGLE
     Route: 030
     Dates: start: 20110613, end: 20110613
  5. BOTOX? [Suspect]
     Dosage: 155 UNITS, SINGLE
     Route: 030
     Dates: start: 20110309, end: 20110309

REACTIONS (1)
  - Alopecia [Unknown]
